FAERS Safety Report 7161706 (Version 6)
Quarter: 2012Q4

REPORT INFORMATION
  Report Type: 
  Country: US (occurrence: US)
  Receive Date: 20091029
  Receipt Date: 20121022
  Transmission Date: 20130627
  Serious: Yes (Hospitalization, Disabling)
  Sender: FDA-Public Use
  Company Number: US-ROCHE-664127

PATIENT
  Age: 43 Year
  Sex: Male
  Weight: 58.1 kg

DRUGS (5)
  1. PEGASYS [Suspect]
     Indication: HEPATITIS C
     Route: 058
     Dates: start: 200904, end: 20091005
  2. PEGASYS [Suspect]
     Route: 058
  3. COPEGUS [Suspect]
     Indication: HEPATITIS C
     Route: 048
     Dates: start: 200904, end: 20091005
  4. COPEGUS [Suspect]
     Route: 048
  5. PRISTIQ [Concomitant]
     Indication: DEPRESSION
     Route: 048
     Dates: start: 20090918, end: 20091009

REACTIONS (14)
  - Diabetic ketoacidosis [Recovered/Resolved]
  - Pancreatitis acute [Unknown]
  - Type 1 diabetes mellitus [Not Recovered/Not Resolved]
  - Thrombocytopenia [Recovering/Resolving]
  - White blood cell count decreased [Not Recovered/Not Resolved]
  - Vitamin D decreased [Not Recovered/Not Resolved]
  - Tooth abscess [Recovering/Resolving]
  - Urinary tract infection [Recovering/Resolving]
  - Hypophosphataemia [Recovered/Resolved]
  - Hypocalcaemia [Recovered/Resolved]
  - Surgery [Unknown]
  - Impaired healing [Unknown]
  - Dental care [Unknown]
  - Hepatitis C [Unknown]
